FAERS Safety Report 8171085-4 (Version None)
Quarter: 2012Q1

REPORT INFORMATION
  Report Type: 
  Country: None (occurrence: None)
  Receive Date: 20120228
  Receipt Date: 20120221
  Transmission Date: 20120608
  Serious: Yes (Other)
  Sender: FDA-Public Use
  Company Number: PHHY2011CA18325

PATIENT
  Sex: Female

DRUGS (8)
  1. VITAMIN D [Concomitant]
  2. COUMADIN [Concomitant]
  3. ZOLEDRONOC ACID [Suspect]
     Indication: OSTEOPOROSIS
     Dosage: UNK
     Route: 042
     Dates: start: 20110224
  4. IBUPROFEN (ADVIL) [Concomitant]
  5. DILTIAZEM HCL [Concomitant]
  6. LIPITOR [Concomitant]
  7. METOPROLOL [Concomitant]
  8. ASPIRIN [Concomitant]

REACTIONS (8)
  - HYPERSOMNIA [None]
  - DIZZINESS [None]
  - BONE PAIN [None]
  - MALAISE [None]
  - DECREASED APPETITE [None]
  - DECREASED ACTIVITY [None]
  - WEIGHT DECREASED [None]
  - NAUSEA [None]
